FAERS Safety Report 5693606-3 (Version None)
Quarter: 2008Q2

REPORT INFORMATION
  Report Type: 
  Country: None (occurrence: None)
  Receive Date: 20080328
  Receipt Date: 20071116
  Transmission Date: 20081010
  Serious: Yes (Disabling)
  Sender: FDA-Public Use
  Company Number: US-WYE-H01318307

PATIENT
  Age: 68 Year
  Sex: Female
  Weight: 78.09 kg

DRUGS (5)
  1. PROTONIX [Suspect]
     Indication: GASTROOESOPHAGEAL REFLUX DISEASE
     Dosage: 40 MG 2X PER 1 DAY, ORAL
     Route: 048
  2. LOVAZA [Concomitant]
  3. MULTIVITAMINS, COMBINATIONS (MULTIVITAMINS, COMBINATIONS) [Concomitant]
  4. CALCIUM (CALCIUM) [Concomitant]
  5. COENZYME Q10 (COENZYME Q10) [Concomitant]

REACTIONS (1)
  - ARTHRALGIA [None]
